FAERS Safety Report 6631808-X (Version None)
Quarter: 2010Q1

REPORT INFORMATION
  Report Type: 
  Country: None (occurrence: None)
  Receive Date: 20100312
  Receipt Date: 20100227
  Transmission Date: 20100710
  Serious: Yes (Other)
  Sender: FDA-Public Use
  Company Number: US-BAYER-201018013GPV

PATIENT
  Age: 34 Year
  Sex: Male

DRUGS (7)
  1. DACARBAZINE [Suspect]
     Indication: HODGKIN'S DISEASE
     Route: 065
  2. DOXORUBICIN [Suspect]
     Indication: HODGKIN'S DISEASE
     Route: 065
  3. BLEOMYCIN [Suspect]
     Indication: HODGKIN'S DISEASE
     Route: 065
  4. VINBLASTINE [Suspect]
     Indication: HODGKIN'S DISEASE
     Route: 065
  5. IFOSFAMIDE [Suspect]
     Indication: HODGKIN'S DISEASE
     Route: 065
  6. CARBOPLATIN [Suspect]
     Indication: HODGKIN'S DISEASE
     Route: 065
  7. ETOPOSIDE [Suspect]
     Indication: HODGKIN'S DISEASE
     Route: 065

REACTIONS (1)
  - ACUTE LYMPHOCYTIC LEUKAEMIA [None]
